FAERS Safety Report 9454044 (Version 2)
Quarter: 2013Q3

REPORT INFORMATION
  Report Type: Report from Study
  Country: NL (occurrence: NL)
  Receive Date: 20130812
  Receipt Date: 20130827
  Transmission Date: 20140515
  Serious: Yes (Hospitalization, Disabling, Other)
  Sender: FDA-Public Use
  Company Number: NL-GENZYME-CLOF-1002740

PATIENT
  Age: 65 Year
  Sex: Male
  Weight: 80 kg

DRUGS (3)
  1. EVOLTRA [Suspect]
     Indication: ACUTE MYELOID LEUKAEMIA
     Dosage: 19 MG, QD
     Route: 042
     Dates: start: 20130720
  2. IDARUBICIN [Suspect]
     Indication: ACUTE MYELOID LEUKAEMIA
     Dosage: 23 MG, UNK
     Route: 042
     Dates: start: 20130720
  3. CYTARABINE [Suspect]
     Indication: ACUTE MYELOID LEUKAEMIA
     Dosage: 380 MG, UNK
     Route: 042
     Dates: start: 20130720

REACTIONS (2)
  - Haemorrhage intracranial [Recovered/Resolved with Sequelae]
  - Fungal infection [Unknown]
